FAERS Safety Report 23052771 (Version 1)
Quarter: 2023Q4

REPORT INFORMATION
  Report Type: Spontaneous
  Country: GB (occurrence: GB)
  Receive Date: 20231011
  Receipt Date: 20231011
  Transmission Date: 20240109
  Serious: Yes (Hospitalization)
  Sender: FDA-Public Use
  Company Number: GB-TAKEDA-2022TUS011239

PATIENT
  Sex: Female

DRUGS (4)
  1. DEXAMETHASONE [Suspect]
     Active Substance: DEXAMETHASONE
     Indication: Plasma cell myeloma
     Dosage: 20 MILLIGRAM, ON 1, 8, 15 AND 22 DAYS, ON 03-FEB-2022, THE SUBJECT RECEIVED THE LAST DOSE OF IXAZOMI
     Route: 048
     Dates: start: 20210928
  2. LANSOPRAZOLE [Suspect]
     Active Substance: LANSOPRAZOLE
     Indication: Gastric pH increased
     Dosage: 15 MILLIGRAM DAILY; 15 MILLIGRAM, QD, DURATION : 141 DAYS
     Route: 048
     Dates: start: 20210929, end: 20220216
  3. LENALIDOMIDE [Suspect]
     Active Substance: LENALIDOMIDE
     Indication: Plasma cell myeloma
     Dosage: 5 MILLIGRAM, ON 1 TO 21 DAYS, ON 09-FEB-2022, THE SUBJECT RECEIVED THE LAST DOSE OF LENALIDOMIDE PRI
     Route: 048
     Dates: start: 20210928
  4. IXAZOMIB [Suspect]
     Active Substance: IXAZOMIB
     Indication: Plasma cell myeloma
     Dosage: 3 MILLIGRAM, ON 1, 8, AND 15 DAYS, ON 03-FEB-2022, THE SUBJECT RECEIVED THE LAST DOSE OF IXAZOMIB AN
     Route: 048
     Dates: start: 20210928

REACTIONS (2)
  - Blood magnesium decreased [Recovered/Resolved]
  - Adjusted calcium decreased [Recovered/Resolved]

NARRATIVE: CASE EVENT DATE: 20220216
